FAERS Safety Report 7668116-4 (Version None)
Quarter: 2011Q3

REPORT INFORMATION
  Report Type: 
  Country: None (occurrence: None)
  Receive Date: 20110808
  Receipt Date: 20110726
  Transmission Date: 20111222
  Serious: Yes (Other)
  Sender: FDA-Public Use
  Company Number: US-JNJFOC-20110801127

PATIENT
  Sex: Female

DRUGS (2)
  1. LISTERINE WHITENING PLUS RESTORING FLUORIDE RINSE CLEAN MINT [Suspect]
     Indication: DENTAL DISORDER PROPHYLAXIS
     Dosage: 2 TEASPOONS ONCE
     Route: 048
  2. HIGH BLOOD PRESSURE MEDICATION, NOS [Concomitant]
     Indication: HYPERTENSION
     Route: 065

REACTIONS (3)
  - STOMATITIS [None]
  - APPLICATION SITE BURN [None]
  - APPLICATION SITE VESICLES [None]
